FAERS Safety Report 7719575-X (Version None)
Quarter: 2011Q3

REPORT INFORMATION
  Report Type: 
  Country: None (occurrence: None)
  Receive Date: 20110830
  Receipt Date: 20110818
  Transmission Date: 20111222
  Serious: Yes (Other)
  Sender: FDA-Public Use
  Company Number: US-CELGENEUS-163-21880-11073240

PATIENT
  Sex: Female

DRUGS (8)
  1. PAMIDRONATE DISODIUM [Concomitant]
     Dosage: 100 MILLIGRAM
     Route: 041
  2. ASPIRIN [Concomitant]
     Dosage: 325 MILLIGRAM
     Route: 065
  3. REVLIMID [Suspect]
     Dosage: 2.5 MILLIGRAM
     Route: 048
     Dates: start: 20110801
  4. REVLIMID [Suspect]
     Indication: MULTIPLE MYELOMA
     Dosage: 5 MILLIGRAM
     Route: 048
     Dates: start: 20110301
  5. DEXAMETHASONE [Concomitant]
     Dosage: 20 MILLIGRAM
     Route: 065
  6. LABETALOL HCL [Concomitant]
     Dosage: 100 MILLIGRAM
     Route: 065
  7. PREDNISONE [Concomitant]
     Route: 065
  8. DIGOXIN [Concomitant]
     Dosage: .125 MILLIGRAM
     Route: 065

REACTIONS (3)
  - RASH PRURITIC [None]
  - ATRIAL FIBRILLATION [None]
  - HYPOACUSIS [None]
